FAERS Safety Report 11725706 (Version 1)
Quarter: 2015Q4

REPORT INFORMATION
  Report Type: Spontaneous
  Country: US (occurrence: US)
  Receive Date: 20151110
  Receipt Date: 20151110
  Transmission Date: 20160304
  Serious: No
  Sender: FDA-Public Use
  Company Number: US-ELI_LILLY_AND_COMPANY-US201110001265

PATIENT
  Age: 69 Year
  Sex: Female

DRUGS (18)
  1. RESTASIS [Concomitant]
     Active Substance: CYCLOSPORINE
  2. ASTEPRO [Concomitant]
     Active Substance: AZELASTINE HYDROCHLORIDE
     Route: 045
  3. CENTRUM SILVER [Concomitant]
     Active Substance: MINERALS\VITAMINS
  4. DIOVAN [Concomitant]
     Active Substance: VALSARTAN
  5. FOLIC ACID. [Concomitant]
     Active Substance: FOLIC ACID
  6. VITAMIN K [Concomitant]
     Active Substance: PHYTONADIONE
  7. CLARITIN [Concomitant]
     Active Substance: LORATADINE
  8. CELEXA [Concomitant]
     Active Substance: CITALOPRAM HYDROBROMIDE
  9. METAMUCIL [Concomitant]
     Active Substance: PLANTAGO SEED
  10. STOOL SOFTENER [Concomitant]
     Active Substance: DOCUSATE CALCIUM
  11. LEVOTHYROXIN [Concomitant]
     Active Substance: LEVOTHYROXINE
  12. FLU [Concomitant]
     Active Substance: INFLUENZA VIRUS VACCINE
  13. FLUTICASONE [Concomitant]
     Active Substance: FLUTICASONE\FLUTICASONE PROPIONATE
  14. FORTEO [Suspect]
     Active Substance: TERIPARATIDE
     Indication: OSTEOPOROSIS
     Dosage: 20 UG, QD
     Dates: start: 201104
  15. NEXIUM [Concomitant]
     Active Substance: ESOMEPRAZOLE MAGNESIUM
  16. ASMANEX [Concomitant]
     Active Substance: MOMETASONE FUROATE
  17. VITAMIN D [Concomitant]
     Active Substance: CHOLECALCIFEROL
  18. CALCIUM WITH VITAMIN D             /00944201/ [Concomitant]
     Active Substance: CALCIUM\VITAMIN D

REACTIONS (10)
  - Injection site pain [Unknown]
  - Ankle fracture [Recovered/Resolved]
  - Adverse event [Unknown]
  - Limb injury [Unknown]
  - Insomnia [Unknown]
  - Limb crushing injury [Recovering/Resolving]
  - Peripheral swelling [Recovering/Resolving]
  - Injection site bruising [Unknown]
  - Pain [Unknown]
  - Malaise [Unknown]

NARRATIVE: CASE EVENT DATE: 20110714
